FAERS Safety Report 9425938 (Version 2)
Quarter: 2013Q4

REPORT INFORMATION
  Report Type: Report from Study
  Country: BR (occurrence: BR)
  Receive Date: 20130729
  Receipt Date: 20131117
  Transmission Date: 20140711
  Serious: Yes (Other)
  Sender: FDA-Public Use
  Company Number: BR-US-EMD SERONO, INC.-7225333

PATIENT
  Sex: Female

DRUGS (3)
  1. REBIF [Suspect]
     Indication: RELAPSING-REMITTING MULTIPLE SCLEROSIS
     Dates: start: 201106
  2. LOSARTAN [Concomitant]
     Indication: BLOOD PRESSURE
     Dosage: 1 TABLET ON MORNING AND 1 TABLET AT NIGHT
  3. PARACETAMOL [Concomitant]
     Indication: PREMEDICATION

REACTIONS (1)
  - Tooth disorder [Recovered/Resolved]
